FAERS Safety Report 8533195-9 (Version None)
Quarter: 2012Q2

REPORT INFORMATION
  Report Type: 
  Country: None (occurrence: None)
  Receive Date: 20120412
  Receipt Date: 20100701
  Transmission Date: 20120825
  Serious: Yes (Hospitalization)
  Sender: FDA-Public Use
  Company Number: PHHY2010US39710

PATIENT
  Age: 72 Year
  Sex: Male

DRUGS (5)
  1. MULTIVITAMIN [Concomitant]
  2. CLOZARIL [Suspect]
     Indication: HALLUCINATION
     Dosage: 25 MG, QD, ORAL
     Route: 048
     Dates: end: 20100611
  3. CLOZARIL [Suspect]
     Indication: SUBSTANCE-INDUCED PSYCHOTIC DISORDER
     Dosage: 25 MG, QD, ORAL
     Route: 048
     Dates: end: 20100611
  4. SINEMET [Concomitant]
  5. EXELON [Concomitant]

REACTIONS (1)
  - THROMBOCYTOPENIA [None]
